FAERS Safety Report 11928431 (Version 2)
Quarter: 2016Q1

REPORT INFORMATION
  Report Type: Spontaneous
  Country: AR (occurrence: AR)
  Receive Date: 20160119
  Receipt Date: 20160222
  Transmission Date: 20160526
  Serious: Yes (Hospitalization)
  Sender: FDA-Public Use
  Company Number: AR-PFIZER INC-2016023126

PATIENT
  Age: 76 Year
  Sex: Male

DRUGS (2)
  1. OMEPRAZOL [Concomitant]
     Active Substance: OMEPRAZOLE
     Dosage: UNK
     Dates: start: 2015
  2. SUTENT [Suspect]
     Active Substance: SUNITINIB MALATE
     Indication: RENAL CELL CARCINOMA
     Dosage: 50 MG, CYCLIC (2/1 SCHEME)
     Dates: start: 201506, end: 201512

REACTIONS (6)
  - Pain [Recovering/Resolving]
  - Asthenia [Not Recovered/Not Resolved]
  - Blood pressure decreased [Recovered/Resolved]
  - Feeling abnormal [Recovered/Resolved]
  - Localised infection [Recovered/Resolved]
  - Oral mucosal blistering [Recovered/Resolved]

NARRATIVE: CASE EVENT DATE: 201512
